FAERS Safety Report 18551615 (Version 2)
Quarter: 2020Q4

REPORT INFORMATION
  Report Type: Spontaneous
  Country: US (occurrence: US)
  Receive Date: 20201126
  Receipt Date: 20201215
  Transmission Date: 20210114
  Serious: Yes (Other)
  Sender: FDA-Public Use
  Company Number: US-TEVA-2020-US-1851342

PATIENT
  Age: 60 Year
  Sex: Male

DRUGS (3)
  1. NIVOLUMAB [Suspect]
     Active Substance: NIVOLUMAB
     Indication: PLEURAL MESOTHELIOMA MALIGNANT
     Route: 041
  2. SIMVASTATIN. [Concomitant]
     Active Substance: SIMVASTATIN
     Indication: DRUG THERAPY
     Route: 065
  3. LISINOPRIL. [Suspect]
     Active Substance: LISINOPRIL
     Indication: DRUG THERAPY
     Route: 065

REACTIONS (5)
  - Glomerulonephritis membranous [Recovered/Resolved]
  - Type 1 diabetes mellitus [Unknown]
  - Hyperkalaemia [Recovered/Resolved]
  - Off label use [Unknown]
  - Diabetic ketoacidosis [Unknown]
